FAERS Safety Report 13210379 (Version 2)
Quarter: 2017Q1

REPORT INFORMATION
  Report Type: Spontaneous
  Country: US (occurrence: US)
  Receive Date: 20170210
  Receipt Date: 20170322
  Transmission Date: 20170428
  Serious: Yes (Hospitalization)
  Sender: FDA-Public Use
  Company Number: US-AEGERION PHARMACEUTICAL INC-AEGR002996

PATIENT
  Age: 21 Year
  Sex: Female

DRUGS (2)
  1. MYALEPT [Suspect]
     Active Substance: METRELEPTIN
     Indication: CONGENITAL GENERALISED LIPODYSTROPHY
     Dosage: 3.75 MG, QD
     Route: 058
     Dates: start: 201510, end: 201702
  2. MYALEPT [Suspect]
     Active Substance: METRELEPTIN
     Dosage: 3.75 MG, QD
     Route: 058
     Dates: start: 201703

REACTIONS (5)
  - Superior mesenteric artery syndrome [Unknown]
  - Therapy cessation [Recovered/Resolved]
  - Abdominal pain [Unknown]
  - Malnutrition [Unknown]
  - Weight decreased [Unknown]

NARRATIVE: CASE EVENT DATE: 201612
